FAERS Safety Report 8234082 (Version 2)
Quarter: 2012Q4

REPORT INFORMATION
  Report Type: 
  Country: US (occurrence: US)
  Receive Date: 20111107
  Receipt Date: 20121107
  Transmission Date: 20130627
  Serious: Yes (Hospitalization)
  Sender: FDA-Public Use
  Company Number: US-AMGEN-USASP2011047353

PATIENT
  Age: 44 Year
  Sex: Male
  Weight: 106.58 kg

DRUGS (3)
  1. ENBREL [Suspect]
     Indication: PSORIASIS
     Dosage: 50 mg, 2 times/wk
     Dates: start: 20110601, end: 201109
  2. OMEPRAZOLE [Concomitant]
     Dosage: 10 mg, UNK
     Route: 048
  3. MULTIVITAMIN [Concomitant]
     Dosage: UNK
     Route: 048

REACTIONS (3)
  - Staphylococcal infection [Recovered/Resolved]
  - Arthritis infective [Recovered/Resolved]
  - Psoriasis [Not Recovered/Not Resolved]
